FAERS Safety Report 9310694 (Version 2)
Quarter: 2013Q3

REPORT INFORMATION
  Report Type: Spontaneous
  Country: SE (occurrence: SE)
  Receive Date: 20130527
  Receipt Date: 20130718
  Transmission Date: 20140515
  Serious: Yes (Hospitalization)
  Sender: FDA-Public Use
  Company Number: SE-ROCHE-1228591

PATIENT
  Sex: 0

DRUGS (1)
  1. ROACTEMRA [Suspect]
     Indication: PSORIATIC ARTHROPATHY
     Route: 065

REACTIONS (3)
  - Respiratory failure [Unknown]
  - Lung infiltration [Unknown]
  - Alveolitis [Unknown]
